FAERS Safety Report 7873282-1 (Version None)
Quarter: 2011Q4

REPORT INFORMATION
  Report Type: 
  Country: None (occurrence: None)
  Receive Date: 20111030
  Receipt Date: 20110502
  Transmission Date: 20120403
  Serious: No
  Sender: FDA-Public Use
  Company Number: US-AMGEN-USASP2011019672

PATIENT
  Age: 61 Year
  Sex: Male

DRUGS (1)
  1. ENBREL [Suspect]
     Indication: RHEUMATOID ARTHRITIS
     Dosage: 25 MG, 2 TIMES/WK
     Dates: start: 20040721

REACTIONS (6)
  - ACCIDENT AT WORK [None]
  - LIGAMENT SPRAIN [None]
  - FALL [None]
  - NECK PAIN [None]
  - BACK PAIN [None]
  - CONTUSION [None]
